FAERS Safety Report 9894999 (Version 2)
Quarter: 2014Q1

REPORT INFORMATION
  Report Type: Spontaneous
  Country: US (occurrence: US)
  Receive Date: 20140213
  Receipt Date: 20140213
  Transmission Date: 20141002
  Serious: No
  Sender: FDA-Public Use
  Company Number: US-BRISTOL-MYERS SQUIBB COMPANY-17268335

PATIENT
  Age: 76 Year
  Sex: Female

DRUGS (7)
  1. ORENCIA [Suspect]
     Indication: RHEUMATOID ARTHRITIS
     Dosage: RECENT DOSE 2JAN13?LAST DOSE:18MAR2013?5TH INF:1DF-75UTS:SCHEDULED15MY13
     Route: 042
     Dates: start: 20121219
  2. CELEBREX [Concomitant]
  3. METHOTREXATE [Concomitant]
  4. FOLIC ACID [Concomitant]
  5. EVOXAC [Concomitant]
  6. TYLENOL [Concomitant]
  7. SYNTHROID [Concomitant]

REACTIONS (5)
  - Malaise [Recovered/Resolved]
  - Vomiting [Recovered/Resolved]
  - Diarrhoea [Recovered/Resolved]
  - Dry skin [Recovered/Resolved]
  - Hand deformity [Recovered/Resolved]
